FAERS Safety Report 8061527-7 (Version None)
Quarter: 2012Q1

REPORT INFORMATION
  Report Type: 
  Country: None (occurrence: None)
  Receive Date: 20120120
  Receipt Date: 20111230
  Transmission Date: 20120608
  Serious: No
  Sender: FDA-Public Use
  Company Number: US-ALLERGAN-1116991US

PATIENT
  Sex: Male

DRUGS (2)
  1. RESTASIS [Suspect]
     Indication: VISION BLURRED
     Dosage: 2 GTT, BID
     Route: 047
  2. AVASTIN [Concomitant]
     Indication: PRODUCT USED FOR UNKNOWN INDICATION
     Route: 031

REACTIONS (2)
  - VISION BLURRED [None]
  - EYE IRRITATION [None]
